FAERS Safety Report 7374057-2 (Version None)
Quarter: 2011Q1

REPORT INFORMATION
  Report Type: 
  Country: None (occurrence: None)
  Receive Date: 20110325
  Receipt Date: 20110214
  Transmission Date: 20110831
  Serious: Yes (Hospitalization, Other)
  Sender: FDA-Public Use
  Company Number: US-BAYER-201022779NA

PATIENT
  Sex: Female
  Weight: 78.458 kg

DRUGS (10)
  1. OLUX [Concomitant]
     Dosage: 0.2 %, UNK
     Dates: start: 20010801
  2. WELLBUTRIN [Concomitant]
     Dosage: 100 MG, BID
  3. ERY-TAB [Concomitant]
     Dosage: UNK
     Route: 048
     Dates: start: 20050601
  4. CEPHALEXIN [Concomitant]
     Dosage: UNK
     Route: 048
     Dates: start: 20050901
  5. VICODIN [Concomitant]
     Dosage: UNK UNK, PRN
  6. UNCODEABLE ^UNCLASSIFIABLE^ [Concomitant]
     Dosage: UNK
     Dates: start: 20040519
  7. WELLBUTRIN [Concomitant]
     Dosage: 50 MG, CONT
     Route: 048
  8. MULTIVITAMIN [Concomitant]
  9. YASMIN [Suspect]
     Indication: PRODUCT USED FOR UNKNOWN INDICATION
     Dosage: UNK UNK, UNK
     Route: 048
     Dates: start: 20040701, end: 20050901
  10. BUPROPION HYDROCHLORIDE [Concomitant]
     Dosage: 100 MG, UNK
     Route: 048

REACTIONS (4)
  - DYSPNOEA [None]
  - DEEP VEIN THROMBOSIS [None]
  - DILATATION VENTRICULAR [None]
  - PULMONARY EMBOLISM [None]
